FAERS Safety Report 8813536 (Version 1)
Quarter: 2012Q4

REPORT INFORMATION
  Report Type: 
  Country: US (occurrence: US)
  Receive Date: 20120927
  Receipt Date: 20120927
  Transmission Date: 20130627
  Serious: No
  Sender: FDA-Public Use
  Company Number: US-AMGEN-USASP2012048483

PATIENT
  Age: 79 Year
  Sex: Female
  Weight: 74.38 kg

DRUGS (17)
  1. PROLIA [Suspect]
     Indication: OSTEOPOROSIS POSTMENOPAUSAL
     Dosage: 60 mg, q6mo
     Route: 058
     Dates: start: 20110301, end: 20120301
  2. AMILORIDE [Concomitant]
     Dosage: 5 mg, UNK
     Route: 048
  3. AMITRIPTYLINE [Concomitant]
     Dosage: UNK
     Route: 048
  4. COREG CR [Concomitant]
     Dosage: UNK
     Route: 048
  5. CYANOCOBALAMIN [Concomitant]
     Dosage: UNK
     Route: 048
  6. GLUCOSAMINE [Concomitant]
     Dosage: UNK
     Route: 048
  7. LYRICA [Concomitant]
     Dosage: 75 mg, UNK
     Route: 048
  8. MULTIVITAMIN                       /07504101/ [Concomitant]
     Dosage: UNK
     Route: 048
  9. NEURONTIN [Concomitant]
     Dosage: UNK
     Route: 048
  10. NEXIUM                             /01479302/ [Concomitant]
     Dosage: 40 mg, UNK
     Route: 048
  11. OSCAL                              /00514701/ [Concomitant]
     Dosage: UNK
  12. REGLAN                             /00041901/ [Concomitant]
     Dosage: 10 mg, UNK
     Route: 048
  13. SELENIUM [Concomitant]
     Dosage: 200 mug, qd
  14. SIMVASTATIN [Concomitant]
     Dosage: 20 mg, UNK
     Route: 048
  15. SYNTHROID [Concomitant]
     Indication: THYROID DISORDER
     Dosage: UNK
     Route: 048
  16. VITAMIN C                          /00008001/ [Concomitant]
     Dosage: UNK
     Route: 048
  17. VITAMIN D /00107901/ [Concomitant]
     Dosage: UNK

REACTIONS (2)
  - Tooth fracture [Recovering/Resolving]
  - Dental caries [Unknown]
